FAERS Safety Report 4356281-6 (Version None)
Quarter: 2004Q2

REPORT INFORMATION
  Report Type: 
  Country: None (occurrence: None)
  Receive Date: 20040510
  Receipt Date: 20040510
  Transmission Date: 20050107
  Serious: Yes (Hospitalization)
  Sender: FDA-Public Use
  Company Number: None

PATIENT
  Age: 80 Year
  Sex: Female
  Weight: 64.4108 kg

DRUGS (10)
  1. FRESHBURST LISTERINE (EUCALYPTOL, MENTHOL, METHYLSALICYLATE, THYMOL) [Suspect]
     Indication: DENTAL CARE
     Dosage: A CAPFUL, TWICE A DAY, ORAL TOPICAL
     Route: 048
     Dates: start: 20000101
  2. METHYLPREDNISOLONE [Concomitant]
  3. DILTIAZEM HYDROCHLORIDE [Concomitant]
  4. ATORVASTATIN CALCIUM [Concomitant]
  5. POTASSIUM [Concomitant]
  6. TIMOLOL MALEATE [Concomitant]
  7. CALCIUM CARBONATE [Concomitant]
  8. ESOMEPRAZOLE [Concomitant]
  9. SULFADIAZINE [Concomitant]
  10. ETANERCEPT [Concomitant]

REACTIONS (5)
  - DYSPHAGIA [None]
  - FUNGAL INFECTION [None]
  - LUNG INFECTION [None]
  - ORAL CANDIDIASIS [None]
  - PNEUMONIA [None]
